FAERS Safety Report 7419228-1 (Version None)
Quarter: 2011Q2

REPORT INFORMATION
  Report Type: 
  Country: None (occurrence: None)
  Receive Date: 20110415
  Receipt Date: 20110412
  Transmission Date: 20111010
  Serious: Yes (Hospitalization)
  Sender: FDA-Public Use
  Company Number: PHHO2010US16608

PATIENT
  Sex: Female

DRUGS (16)
  1. MULTI-VITAMINS [Concomitant]
  2. ZOLPIDEM TARTRATE [Concomitant]
  3. ALBUTEROL [Concomitant]
  4. QUETIAPINE FUMARATE [Concomitant]
  5. DOCUSATE SODIUM [Concomitant]
  6. TREPROSTINOL [Concomitant]
  7. POTASSIUM CHLORIDE [Concomitant]
  8. VENLAFAXINE HCL [Concomitant]
  9. GABAPENTIN [Concomitant]
  10. GLEEVEC [Suspect]
     Indication: PULMONARY ARTERIAL HYPERTENSION
     Dosage: 200 MG, QD
     Route: 048
     Dates: start: 20101022
  11. FUROSEMIDE [Concomitant]
  12. ALBUTEROL SULFATE [Concomitant]
  13. SILDENAFIL [Concomitant]
  14. OLOPATADINE [Concomitant]
  15. OXYCODONE [Concomitant]
  16. METHYLPHENIDATE HCL [Concomitant]

REACTIONS (3)
  - MASTITIS [None]
  - BREAST SWELLING [None]
  - BREAST PAIN [None]
